FAERS Safety Report 8032192-X (Version None)
Quarter: 2012Q1

REPORT INFORMATION
  Report Type: 
  Country: None (occurrence: None)
  Receive Date: 20120110
  Receipt Date: 20111228
  Transmission Date: 20120608
  Serious: Yes (Death, Hospitalization)
  Sender: FDA-Public Use
  Company Number: CA-BIOGENIDEC-2011BI040848

PATIENT
  Age: 24 Year
  Sex: Male

DRUGS (2)
  1. TYSABRI [Suspect]
     Indication: MULTIPLE SCLEROSIS
     Route: 042
     Dates: start: 20110919, end: 20111019
  2. GABAPENTIN [Concomitant]

REACTIONS (3)
  - BLISTER [None]
  - RASH PRURITIC [None]
  - MARBURG'S VARIANT MULTIPLE SCLEROSIS [None]
